FAERS Safety Report 17579930 (Version 9)
Quarter: 2020Q4

REPORT INFORMATION
  Report Type: Report from Study
  Country: JP (occurrence: JP)
  Receive Date: 20200325
  Receipt Date: 20201116
  Transmission Date: 20210113
  Serious: Yes (Death, Life-Threatening, Hospitalization, Other)
  Sender: FDA-Public Use
  Company Number: JP-ASTELLAS-2020JP005184

PATIENT
  Age: 80 Year
  Sex: Male
  Weight: 58 kg

DRUGS (27)
  1. AS3156378 [Suspect]
     Active Substance: AZACITIDINE
     Dosage: 120 MG/DAY, UNKNOWN FREQ.
     Route: 048
     Dates: start: 20191118, end: 20191126
  2. FENTOS [Concomitant]
     Active Substance: FENTANYL
     Indication: CANCER PAIN
     Route: 050
     Dates: start: 20200708
  3. AS3156378 [Suspect]
     Active Substance: AZACITIDINE
     Dosage: 120 MG/DAY, UNKNOWN FREQ.
     Route: 048
     Dates: start: 20191218, end: 20191221
  4. AS3156378 [Suspect]
     Active Substance: AZACITIDINE
     Dosage: 120 MG/DAY, UNKNOWN FREQ.
     Route: 048
     Dates: start: 20200115, end: 20200118
  5. NEXIUM [Concomitant]
     Active Substance: ESOMEPRAZOLE MAGNESIUM
     Indication: GASTRITIS PROPHYLAXIS
     Route: 065
  6. ALFACALCIDOL [Concomitant]
     Active Substance: ALFACALCIDOL
     Indication: OSTEOPOROSIS
     Route: 048
  7. OXYCONTIN TR [Concomitant]
     Active Substance: OXYCODONE HYDROCHLORIDE
     Indication: PAIN IN EXTREMITY
     Route: 048
     Dates: start: 20191102
  8. ASP2215 [Suspect]
     Active Substance: GILTERITINIB
     Dosage: 40 MG/DAY, UNKNOWN FREQ.
     Route: 048
     Dates: start: 20200402, end: 20200628
  9. FENTOS [Concomitant]
     Active Substance: FENTANYL
     Indication: CANCER PAIN
     Dosage: 0.5 MG, ONCE DAILY
     Route: 050
     Dates: start: 20200708
  10. AS3156378 [Suspect]
     Active Substance: AZACITIDINE
     Dosage: 60 MG/DAY, UNKNOWN FREQ.
     Route: 048
     Dates: start: 20200508, end: 20200515
  11. MAGMITT [Concomitant]
     Active Substance: MAGNESIUM OXIDE
     Indication: CONSTIPATION
     Route: 048
     Dates: start: 20191011, end: 20200628
  12. AS3156378 [Suspect]
     Active Substance: AZACITIDINE
     Dosage: 60 MG/DAY, UNKNOWN FREQ.
     Route: 048
     Dates: start: 20200311, end: 20200316
  13. AS3156378 [Suspect]
     Active Substance: AZACITIDINE
     Dosage: 60 MG/DAY, UNKNOWN FREQ.
     Route: 048
     Dates: start: 20200408, end: 20200416
  14. RIVOTRIL [Concomitant]
     Active Substance: CLONAZEPAM
     Indication: SPINAL FRACTURE
     Dosage: 0.5 MG, ONCE DAILY
     Route: 048
  15. ASP2215 [Suspect]
     Active Substance: GILTERITINIB
     Dosage: 80 MG/DAY, UNKNOWN FREQ.
     Route: 048
     Dates: start: 20191211, end: 20200322
  16. AS3156378 [Suspect]
     Active Substance: AZACITIDINE
     Dosage: 60 MG/DAY, UNKNOWN FREQ.
     Route: 048
     Dates: start: 20200604, end: 20200612
  17. PREDNISOLONE. [Concomitant]
     Active Substance: PREDNISOLONE
     Indication: ACUTE MYELOID LEUKAEMIA
     Route: 048
  18. AS3156378 [Suspect]
     Active Substance: AZACITIDINE
     Indication: ACUTE MYELOID LEUKAEMIA
     Dosage: 120 MG/DAY, UNKNOWN FREQ.
     Route: 048
     Dates: start: 20191016, end: 20191022
  19. ACELIO [Concomitant]
     Active Substance: ACETAMINOPHEN
     Indication: PYREXIA
     Dosage: 1 DF, AS NEEDED WHEN PYREXIA/PAIN OCCUR
     Route: 041
     Dates: start: 20190313
  20. ZOSYN [Concomitant]
     Active Substance: PIPERACILLIN SODIUM\TAZOBACTAM SODIUM
     Indication: INFECTION
     Route: 041
     Dates: start: 20190316
  21. ASP2215 [Suspect]
     Active Substance: GILTERITINIB
     Indication: ACUTE MYELOID LEUKAEMIA
     Dosage: 120 MG/DAY, UNKNOWN FREQ.
     Route: 048
     Dates: start: 20191016, end: 20191210
  22. AS3156378 [Suspect]
     Active Substance: AZACITIDINE
     Dosage: 60 MG/DAY, UNKNOWN FREQ.
     Route: 048
     Dates: start: 20200212
  23. AMITIZA [Concomitant]
     Active Substance: LUBIPROSTONE
     Indication: CONSTIPATION
     Route: 048
  24. ACELIO [Concomitant]
     Active Substance: ACETAMINOPHEN
     Indication: CANCER PAIN
  25. OXYCONTIN TR [Concomitant]
     Active Substance: OXYCODONE HYDROCHLORIDE
     Indication: CANCER PAIN
     Route: 048
  26. BIOFERMIN R [Concomitant]
     Active Substance: DIETARY SUPPLEMENT\PROBIOTICS
     Indication: GASTROINTESTINAL DISORDER
     Dosage: 1 TABLET, THRICE DAILY
     Route: 048
     Dates: start: 20191115, end: 20200628
  27. OXIFAST [Concomitant]
     Active Substance: OXYCODONE
     Indication: PRODUCT USED FOR UNKNOWN INDICATION
     Dosage: UNK UNK, UNKNOWN FREQ.
     Route: 065
     Dates: start: 20200629

REACTIONS (6)
  - Delirium febrile [Recovered/Resolved]
  - Lower gastrointestinal haemorrhage [Recovering/Resolving]
  - Retinitis pigmentosa [Not Recovered/Not Resolved]
  - Pneumonia [Recovering/Resolving]
  - Acute myeloid leukaemia [Fatal]
  - Pyrexia [Recovering/Resolving]

NARRATIVE: CASE EVENT DATE: 20200316
